FAERS Safety Report 5157096-1 (Version None)
Quarter: 2006Q4

REPORT INFORMATION
  Report Type: 
  Country: None (occurrence: None)
  Receive Date: 20061127
  Receipt Date: 20041022
  Transmission Date: 20070319
  Serious: Yes (Hospitalization)
  Sender: FDA-Public Use
  Company Number: US-ELI_LILLY_AND_COMPANY-US_0410107365

PATIENT
  Age: 51 Year
  Sex: Female
  Weight: 110.66 kg

DRUGS (10)
  1. METOPROLOL [Concomitant]
     Dates: start: 20011201, end: 20040401
  2. ZYPREXA [Suspect]
     Indication: DEPRESSION
     Dosage: 10 MG, EACH EVENING
     Route: 048
     Dates: start: 20020101, end: 20020301
  3. ZYPREXA [Suspect]
     Dosage: 5 MG, UNK
     Dates: start: 20000701, end: 20010101
  4. TRAZODONE HCL [Concomitant]
     Dosage: 100 MG, EACH EVENING
     Dates: start: 20020101, end: 20020801
  5. KLONOPIN [Concomitant]
     Dosage: 1 MG, UNKNOWN
  6. PAXIL [Concomitant]
     Dosage: 40 MG, UNK
     Dates: start: 20010501, end: 20010601
  7. VITAMIN B-12 [Concomitant]
     Dosage: UNK, UNKNOWN
  8. MAGENSIUM VITAFIT [Concomitant]
     Dosage: UNK, UNKNOWN
  9. FOLATE SODIUM [Concomitant]
     Dosage: UNK, UNKNOWN
  10. RISPERDAL [Concomitant]
     Dosage: UNK, UNKNOWN

REACTIONS (6)
  - CEREBROVASCULAR ACCIDENT [None]
  - CEREBROVASCULAR DISORDER [None]
  - DIABETES MELLITUS NON-INSULIN-DEPENDENT [None]
  - DIABETIC ULCER [None]
  - HYPERTENSION [None]
  - METABOLIC DISORDER [None]
